FAERS Safety Report 4868080-7 (Version None)
Quarter: 2005Q4

REPORT INFORMATION
  Report Type: 
  Country: None (occurrence: None)
  Receive Date: 20051229
  Receipt Date: 20051219
  Transmission Date: 20060501
  Serious: Yes (Hospitalization)
  Sender: FDA-Public Use
  Company Number: JP-JNJFOC-20051204725

PATIENT
  Sex: Male

DRUGS (2)
  1. ITRIZOLE [Suspect]
     Indication: NAIL TINEA
     Route: 048
     Dates: start: 20050901
  2. METOPROLOL TARTRATE [Concomitant]
     Route: 065

REACTIONS (4)
  - ENANTHEMA [None]
  - ERYTHEMA MULTIFORME [None]
  - PYREXIA [None]
  - RASH [None]
